FAERS Safety Report 8529413-3 (Version None)
Quarter: 2012Q3

REPORT INFORMATION
  Report Type: 
  Country: None (occurrence: None)
  Receive Date: 20120723
  Receipt Date: 20120705
  Transmission Date: 20120928
  Serious: No
  Sender: FDA-Public Use
  Company Number: US-009507513-1207USA000736

PATIENT

DRUGS (1)
  1. VICTRELIS [Suspect]
     Indication: HEPATITIS C
     Dosage: UNK
     Route: 048

REACTIONS (2)
  - GASTRIC ULCER [None]
  - OROPHARYNGEAL PAIN [None]
